FAERS Safety Report 9613647 (Version 1)
Quarter: 2013Q4

REPORT INFORMATION
  Report Type: Spontaneous
  Country: US (occurrence: US)
  Receive Date: 20131010
  Receipt Date: 20131010
  Transmission Date: 20140711
  Serious: Yes (Death, Hospitalization, Other)
  Sender: FDA-Public Use
  Company Number: US-BAXTER-2013BAX038910

PATIENT
  Age: 87 Year
  Sex: Male

DRUGS (2)
  1. DIANEAL PD2 (ULTRABAG) [Suspect]
     Indication: PERITONEAL DIALYSIS
     Route: 033
     Dates: end: 201307
  2. DIANEAL PD2 (ULTRABAG) [Suspect]
     Indication: PERITONEAL DIALYSIS
     Route: 033
     Dates: end: 201307

REACTIONS (5)
  - Death [Fatal]
  - Abscess intestinal [Recovering/Resolving]
  - Functional gastrointestinal disorder [Unknown]
  - Flank pain [Unknown]
  - Peritonitis [Recovered/Resolved]
